FAERS Safety Report 4305513-9 (Version None)
Quarter: 2004Q1

REPORT INFORMATION
  Report Type: 
  Country: None (occurrence: None)
  Receive Date: 20040226
  Receipt Date: 20031111
  Transmission Date: 20041129
  Serious: No
  Sender: FDA-Public Use
  Company Number: US-BRISTOL-MYERS SQUIBB COMPANY-12432696

PATIENT
  Age: 15 Year
  Sex: Male
  Weight: 87 kg

DRUGS (4)
  1. ABILIFY [Suspect]
     Indication: MOOD SWINGS
     Dosage: DOSE LOWERED TO 7.5 MG/DAY ON 07-OCT-2003
     Route: 048
     Dates: start: 20030923
  2. ABILIFY [Suspect]
     Indication: BIPOLAR DISORDER
     Dosage: DOSE LOWERED TO 7.5 MG/DAY ON 07-OCT-2003
     Route: 048
     Dates: start: 20030923
  3. IMIPRAMINE [Concomitant]
  4. PAXIL [Concomitant]

REACTIONS (4)
  - DIZZINESS [None]
  - NAUSEA [None]
  - PAIN IN EXTREMITY [None]
  - RESTLESSNESS [None]
